FAERS Safety Report 6081732-9 (Version None)
Quarter: 2009Q1

REPORT INFORMATION
  Report Type: 
  Country: None (occurrence: None)
  Receive Date: 20090126
  Receipt Date: 20080605
  Transmission Date: 20090719
  Serious: Yes (Hospitalization)
  Sender: FDA-Public Use
  Company Number: WAES 0806USA00951

PATIENT
  Age: 35 Year
  Sex: Male

DRUGS (1)
  1. STROMECTOL [Suspect]
     Indication: ONCHOCERCIASIS
     Dosage: 4 TAB/1X
     Dates: start: 20080517, end: 20080517

REACTIONS (6)
  - ARTHRALGIA [None]
  - BACK PAIN [None]
  - CONJUNCTIVAL HAEMORRHAGE [None]
  - DYSSTASIA [None]
  - HEADACHE [None]
  - PRURITUS [None]
